FAERS Safety Report 24664822 (Version 1)
Quarter: 2024Q4

REPORT INFORMATION
  Report Type: Spontaneous
  Country: GB (occurrence: GB)
  Receive Date: 20241126
  Receipt Date: 20241126
  Transmission Date: 20250115
  Serious: Yes (Hospitalization)
  Sender: B BRAUN
  Company Number: GB-B.Braun Medical Inc.-2165970

PATIENT
  Age: 71 Year
  Sex: Female

DRUGS (3)
  1. ACETAMINOPHEN [Suspect]
     Active Substance: ACETAMINOPHEN
     Indication: Back pain
  2. CODEINE [Suspect]
     Active Substance: CODEINE
  3. NAPROXEN [Concomitant]
     Active Substance: NAPROXEN

REACTIONS (3)
  - Abdominal pain upper [Recovering/Resolving]
  - Medication error [Recovering/Resolving]
  - Chest pain [Recovering/Resolving]
